FAERS Safety Report 11567439 (Version 7)
Quarter: 2019Q3

REPORT INFORMATION
  Report Type: Report from Study
  Country: BE (occurrence: BE)
  Receive Date: 20150929
  Receipt Date: 20190725
  Transmission Date: 20191004
  Serious: Yes (Hospitalization, Other)
  Sender: FDA-Public Use
  Company Number: BE-ROCHE-ITM201506IM018313

PATIENT
  Age: 73 Year
  Sex: Male

DRUGS (9)
  1. SACCHAROMYCES BOULARDII [Concomitant]
     Active Substance: SACCHAROMYCES CEREVISIAE
     Route: 065
     Dates: start: 20150721, end: 201509
  2. PIRFENIDONE. [Suspect]
     Active Substance: PIRFENIDONE
     Route: 048
     Dates: start: 20150602, end: 20150818
  3. PIRFENIDONE. [Suspect]
     Active Substance: PIRFENIDONE
     Indication: IDIOPATHIC PULMONARY FIBROSIS
     Route: 048
     Dates: start: 20150303, end: 20150602
  4. PIRFENIDONE. [Suspect]
     Active Substance: PIRFENIDONE
     Dosage: 1 CAPSULE MORNING, NOON AND EVENING
     Route: 048
     Dates: start: 20150818, end: 20150908
  5. PIRFENIDONE. [Suspect]
     Active Substance: PIRFENIDONE
     Dosage: 3 CAPSULES MORNING, NOON AND EVENING
     Route: 048
     Dates: start: 20150922, end: 20151020
  6. PIRFENIDONE. [Suspect]
     Active Substance: PIRFENIDONE
     Dosage: 1 CAPSULE MORNING, NOON AND EVENING
     Route: 048
     Dates: start: 20151027, end: 20151110
  7. PIRFENIDONE. [Suspect]
     Active Substance: PIRFENIDONE
     Dosage: 2 CAPSULES MORNING, NOON, 3 IN THE EVENING
     Route: 048
     Dates: start: 20151130
  8. PIRFENIDONE. [Suspect]
     Active Substance: PIRFENIDONE
     Dosage: 2 CAPSULES MORNING, NOON AND EVENING
     Route: 048
     Dates: start: 20150908, end: 20150922
  9. PIRFENIDONE. [Suspect]
     Active Substance: PIRFENIDONE
     Dosage: 2 CAPSULES MORNING, NOON AND EVENING
     Route: 048
     Dates: start: 20151110, end: 20151130

REACTIONS (10)
  - Diarrhoea [Recovered/Resolved]
  - Diverticulitis [Recovered/Resolved]
  - Rash [Recovered/Resolved]
  - Eye swelling [Recovered/Resolved]
  - Vomiting [Recovered/Resolved]
  - Decreased appetite [Recovered/Resolved]
  - Renal impairment [Recovered/Resolved]
  - Weight decreased [Recovered/Resolved]
  - Dermatitis [Recovered/Resolved]
  - Dermatitis exfoliative generalised [Recovered/Resolved]

NARRATIVE: CASE EVENT DATE: 20150602
